FAERS Safety Report 4883528-X (Version None)
Quarter: 2006Q1

REPORT INFORMATION
  Report Type: 
  Country: None (occurrence: None)
  Receive Date: 20060118
  Receipt Date: 20050816
  Transmission Date: 20060701
  Serious: Yes (Hospitalization, Other)
  Sender: FDA-Public Use
  Company Number: US-MERCK-0508USA03075

PATIENT
  Age: 73 Year
  Sex: Male
  Weight: 82 kg

DRUGS (12)
  1. VIOXX [Suspect]
     Indication: SPONDYLITIS
     Route: 048
     Dates: end: 20040901
  2. ASPIRIN [Concomitant]
     Route: 065
  3. FUROSEMIDE [Concomitant]
     Route: 065
  4. LOTENSIN [Concomitant]
     Route: 065
  5. PROTONIX [Concomitant]
     Route: 065
  6. ADVIL [Concomitant]
     Route: 065
  7. BIAXIN [Suspect]
     Route: 065
     Dates: start: 20031118
  8. DOXEPIN HYDROCHLORIDE [Concomitant]
     Route: 065
  9. AMIODARONE HYDROCHLORIDE [Concomitant]
     Route: 065
  10. LEVAQUIN [Concomitant]
     Route: 065
  11. FERO-FOLIC [Concomitant]
     Route: 065
  12. VICODIN [Concomitant]
     Route: 065

REACTIONS (8)
  - ANAEMIA [None]
  - ATRIAL FIBRILLATION [None]
  - ATRIAL FLUTTER [None]
  - CORONARY ARTERY DISEASE [None]
  - MYOCARDIAL INFARCTION [None]
  - PNEUMONIA [None]
  - PULMONARY EMBOLISM [None]
  - SINUS CONGESTION [None]
